FAERS Safety Report 5343163-6 (Version None)
Quarter: 2007Q2

REPORT INFORMATION
  Report Type: 
  Country: None (occurrence: None)
  Receive Date: 20070416
  Receipt Date: 20070225
  Transmission Date: 20071010
  Serious: No
  Sender: FDA-Public Use
  Company Number: 2007SP000643

PATIENT
  Age: 68 Year
  Sex: Female
  Weight: 78.4723 kg

DRUGS (3)
  1. LUNESTA [Suspect]
     Indication: SLEEP DISORDER
     Dosage: 3 MG;HS;ORAL
     Route: 048
     Dates: start: 20070223
  2. ZYRTEC [Concomitant]
  3. SINGULAIR [Concomitant]

REACTIONS (2)
  - GAIT DISTURBANCE [None]
  - SOMNOLENCE [None]
